FAERS Safety Report 6100477-X (Version None)
Quarter: 2009Q1

REPORT INFORMATION
  Report Type: 
  Country: None (occurrence: None)
  Receive Date: 20090303
  Receipt Date: 20090218
  Transmission Date: 20090719
  Serious: Yes (Hospitalization)
  Sender: FDA-Public Use
  Company Number: JP-PFIZER INC-2009173546

PATIENT

DRUGS (2)
  1. METHYLPREDNISOLONE AND METHYLPREDNISOLONE ACETATE AND METHYLPREDNISOLO [Suspect]
     Indication: CHRONIC OBSTRUCTIVE PULMONARY DISEASE
     Dosage: 80 MG, 1X/DAY
     Route: 048
  2. PREDNISOLONE AND PREDNISOLONE STEAGLATE [Concomitant]
     Dosage: UNK
     Route: 048
     Dates: end: 20080909

REACTIONS (4)
  - HYPOALBUMINAEMIA [None]
  - HYPONATRAEMIA [None]
  - ILEUS PARALYTIC [None]
  - STRONGYLOIDIASIS [None]
